FAERS Safety Report 21124769 (Version 1)
Quarter: 2022Q3

REPORT INFORMATION
  Report Type: Spontaneous
  Country: US (occurrence: None)
  Receive Date: 20220723
  Receipt Date: 20220723
  Transmission Date: 20221026
  Serious: Yes (Hospitalization, Other)
  Sender: FDA-Public Use
  Company Number: None

PATIENT
  Age: 20 Year
  Sex: Female
  Weight: 62.14 kg

DRUGS (2)
  1. MIFEPRISTONE [Suspect]
     Active Substance: MIFEPRISTONE
     Indication: Abortion induced
     Dates: start: 20220614
  2. MISOPROSTOL [Suspect]
     Active Substance: MISOPROSTOL

REACTIONS (8)
  - Vaginal haemorrhage [None]
  - Vaginal discharge [None]
  - Uterine infection [None]
  - Uterine cervical pain [None]
  - Uterine tenderness [None]
  - Human chorionic gonadotropin positive [None]
  - Post procedural complication [None]
  - Gestational trophoblastic tumour [None]

NARRATIVE: CASE EVENT DATE: 20220708
